FAERS Safety Report 15476114 (Version 8)
Quarter: 2019Q1

REPORT INFORMATION
  Report Type: Report from Study
  Country: BR (occurrence: BR)
  Receive Date: 20181009
  Receipt Date: 20190306
  Transmission Date: 20190417
  Serious: Yes (Hospitalization, Other)
  Sender: FDA-Public Use
  Company Number: PHHY2018BR115006

PATIENT
  Age: 36 Year
  Sex: Female
  Weight: 85 kg

DRUGS (10)
  1. COSENTYX [Suspect]
     Active Substance: SECUKINUMAB
     Dosage: 150 MG, UNK
     Route: 058
     Dates: start: 20181021
  2. COSENTYX [Suspect]
     Active Substance: SECUKINUMAB
     Dosage: UNK
     Route: 065
     Dates: start: 20190215
  3. COSENTYX [Suspect]
     Active Substance: SECUKINUMAB
     Indication: ANKYLOSING SPONDYLITIS
     Dosage: 150 MG, QMO
     Route: 058
     Dates: start: 20180422, end: 201807
  4. SULFASALAZINE. [Concomitant]
     Active Substance: SULFASALAZINE
     Indication: PRODUCT USED FOR UNKNOWN INDICATION
     Route: 065
  5. COSENTYX [Suspect]
     Active Substance: SECUKINUMAB
     Dosage: 150 MG, QMO
     Route: 058
     Dates: start: 20190115
  6. COSENTYX [Suspect]
     Active Substance: SECUKINUMAB
     Dosage: UNK
     Route: 065
     Dates: start: 20180922
  7. COSENTYX [Suspect]
     Active Substance: SECUKINUMAB
     Dosage: UNK
     Route: 065
     Dates: start: 20181215
  8. METHOTREXATE. [Concomitant]
     Active Substance: METHOTREXATE
     Indication: PRODUCT USED FOR UNKNOWN INDICATION
     Route: 065
  9. XOLAIR [Concomitant]
     Active Substance: OMALIZUMAB
     Indication: PRODUCT USED FOR UNKNOWN INDICATION
     Dosage: UNK
     Route: 065
     Dates: start: 20181215
  10. ETANERCEPT [Suspect]
     Active Substance: ETANERCEPT
     Indication: PRODUCT USED FOR UNKNOWN INDICATION
     Route: 065

REACTIONS (38)
  - Pulmonary fibrosis [Not Recovered/Not Resolved]
  - Decreased immune responsiveness [Not Recovered/Not Resolved]
  - Embolism [Recovered/Resolved]
  - Hypercoagulation [Unknown]
  - Osteosclerosis [Not Recovered/Not Resolved]
  - Urinary tract infection [Recovered/Resolved]
  - Thrombosis [Recovered/Resolved]
  - Arrhythmia [Not Recovered/Not Resolved]
  - Pain [Recovered/Resolved]
  - Weight decreased [Unknown]
  - Chest pain [Unknown]
  - Antiphospholipid syndrome [Recovered/Resolved]
  - Urinary tract infection [Not Recovered/Not Resolved]
  - Neck pain [Not Recovered/Not Resolved]
  - Infection [Unknown]
  - Labyrinthitis [Unknown]
  - Ankylosing spondylitis [Recovered/Resolved]
  - Malaise [Not Recovered/Not Resolved]
  - Vascular occlusion [Unknown]
  - Sinus tachycardia [Unknown]
  - Sinusitis [Recovered/Resolved]
  - Confusional state [Not Recovered/Not Resolved]
  - Toxicity to various agents [Unknown]
  - Depression [Unknown]
  - Inflammation [Unknown]
  - Psoriasis [Unknown]
  - Arthralgia [Not Recovered/Not Resolved]
  - Weight increased [Unknown]
  - Bradycardia [Recovered/Resolved]
  - Breast pain [Unknown]
  - Uveitis [Recovered/Resolved]
  - Memory impairment [Not Recovered/Not Resolved]
  - Syncope [Not Recovered/Not Resolved]
  - Spinal pain [Not Recovered/Not Resolved]
  - Panic disorder [Unknown]
  - Dizziness [Unknown]
  - Vomiting [Not Recovered/Not Resolved]
  - Headache [Not Recovered/Not Resolved]

NARRATIVE: CASE EVENT DATE: 2017
